FAERS Safety Report 6608755-2 (Version None)
Quarter: 2010Q1

REPORT INFORMATION
  Report Type: 
  Country: None (occurrence: None)
  Receive Date: 20100301
  Receipt Date: 20100218
  Transmission Date: 20100710
  Serious: Yes (Other)
  Sender: FDA-Public Use
  Company Number: CA-BAXTER-2010BH003158

PATIENT
  Sex: Female

DRUGS (1)
  1. SODIUM CHLORIDE AND POTASSIUM CHLORIDE INJECTIONS IN PLASTIC CONTAINER [Suspect]
     Indication: DRUG USE FOR UNKNOWN INDICATION
     Route: 042
     Dates: start: 20100211

REACTIONS (4)
  - ASTHENIA [None]
  - DEVICE BREAKAGE [None]
  - EMOTIONAL DISTRESS [None]
  - HAEMORRHAGE [None]
